FAERS Safety Report 7471663-1 (Version None)
Quarter: 2011Q2

REPORT INFORMATION
  Report Type: 
  Country: None (occurrence: None)
  Receive Date: 20110502
  Receipt Date: 20110418
  Transmission Date: 20111010
  Serious: Yes (Hospitalization)
  Sender: FDA-Public Use
  Company Number: 1000020348

PATIENT
  Age: 84 Year
  Sex: Female

DRUGS (11)
  1. HYPERIUM (RILMENIDINE) [Suspect]
     Dosage: 1 MG (1 MG, 1 IN 1 D),ORAL
     Route: 048
     Dates: end: 20101213
  2. AMLODIPINE BESYLATE [Suspect]
     Dosage: 5 MG (5 MG,1 IN 1 D) ,ORAL
     Route: 048
     Dates: end: 20101209
  3. FOSAMAX [Concomitant]
  4. CRESTOR (ROSOVASTATIN)(ROSUVASTATIN) [Concomitant]
  5. IRBESARTAN + HYDROCHLOROTHIAZIDE [Suspect]
     Dosage: 25/300 MG,ORAL
     Route: 048
     Dates: end: 20101209
  6. DAFALGAN (PARACETAMOL) (PARACETAMOL) [Concomitant]
  7. NEBIVOLOL HCL [Suspect]
     Dosage: 5 MG (5 MG, 1 IN 1 D), ORAL
     Route: 048
     Dates: end: 20101209
  8. SMECTA (SMECTITE) (SMECTITE) [Concomitant]
  9. ALLOPURINOL [Concomitant]
  10. OMEPRAZOLE [Concomitant]
  11. KARDEGIC (ACETYLSALICYLATE LYSINE)(ACETYLSALICYLATE LYSINE) [Concomitant]

REACTIONS (2)
  - DROP ATTACKS [None]
  - ORTHOSTATIC HYPOTENSION [None]
